FAERS Safety Report 14069031 (Version 1)
Quarter: 2017Q4

REPORT INFORMATION
  Report Type: Spontaneous
  Country: US (occurrence: US)
  Receive Date: 20171010
  Receipt Date: 20171010
  Transmission Date: 20180321
  Serious: No
  Sender: FDA-Public Use
  Company Number: US-ABBVIE-17K-163-2044848-00

PATIENT

DRUGS (1)
  1. DUOPA [Suspect]
     Active Substance: CARBIDOPA\LEVODOPA
     Indication: PRODUCT USED FOR UNKNOWN INDICATION
     Dosage: 24 HR THERAPY, 2 CASSETTES DAILY
     Route: 050
     Dates: start: 201604

REACTIONS (4)
  - Dyskinesia [Unknown]
  - Pain [Unknown]
  - Incorrect dose administered [Unknown]
  - Weight decreased [Unknown]
